FAERS Safety Report 7631704-5 (Version None)
Quarter: 2011Q3

REPORT INFORMATION
  Report Type: 
  Country: None (occurrence: None)
  Receive Date: 20110725
  Receipt Date: 20110712
  Transmission Date: 20111222
  Serious: Yes (Hospitalization)
  Sender: FDA-Public Use
  Company Number: CA-ELI_LILLY_AND_COMPANY-CA201106002963

PATIENT
  Age: 90 Year
  Sex: Female

DRUGS (1)
  1. FORTEO [Suspect]
     Indication: OSTEOPOROSIS
     Dosage: 20 UG, QD
     Route: 058
     Dates: start: 20101231, end: 20110712

REACTIONS (7)
  - HYPOPHAGIA [None]
  - TREMOR [None]
  - PARAESTHESIA [None]
  - FATIGUE [None]
  - PARKINSON'S DISEASE [None]
  - GENERAL PHYSICAL HEALTH DETERIORATION [None]
  - INSOMNIA [None]
